FAERS Safety Report 9699830 (Version 2)
Quarter: 2013Q4

REPORT INFORMATION
  Report Type: Spontaneous
  Country: JP (occurrence: JP)
  Receive Date: 20131120
  Receipt Date: 20131202
  Transmission Date: 20140711
  Serious: Yes (Hospitalization)
  Sender: FDA-Public Use
  Company Number: JP-JNJFOC-20131108316

PATIENT
  Sex: 0

DRUGS (3)
  1. LOPEMIN [Suspect]
     Route: 048
  2. LOPEMIN [Suspect]
     Indication: PRODUCT USED FOR UNKNOWN INDICATION
     Route: 048
  3. ALBUMIN TANNATE [Concomitant]
     Route: 048

REACTIONS (3)
  - Hospitalisation [Unknown]
  - Prescribed overdose [Unknown]
  - Drug ineffective [Unknown]
